FAERS Safety Report 11746609 (Version 1)
Quarter: 2015Q4

REPORT INFORMATION
  Report Type: Spontaneous
  Country: None (occurrence: None)
  Receive Date: 20151116
  Receipt Date: 20151116
  Transmission Date: 20160304
  Serious: Yes (Other)
  Sender: FDA-Public Use
  Company Number: None

PATIENT
  Age: 61 Year
  Sex: Female

DRUGS (3)
  1. ELDERBERRY SYRUP [Concomitant]
  2. OXCARBAZEPINE. [Suspect]
     Active Substance: OXCARBAZEPINE
     Indication: BIPOLAR DISORDER
     Dosage: 1 PILL ONCE DAILY TAKEN BY MOUTH
     Route: 048
     Dates: start: 20151026, end: 20151113
  3. LIC03 [Concomitant]

REACTIONS (9)
  - Pruritus [None]
  - Rash [None]
  - Impaired driving ability [None]
  - Sleep disorder [None]
  - Constipation [None]
  - Dry skin [None]
  - Blepharospasm [None]
  - Fatigue [None]
  - Dry throat [None]

NARRATIVE: CASE EVENT DATE: 20151113
